FAERS Safety Report 17202421 (Version 1)
Quarter: 2019Q4

REPORT INFORMATION
  Report Type: Spontaneous
  Country: US (occurrence: US)
  Receive Date: 20191204
  Receipt Date: 20191204
  Transmission Date: 20200122
  Serious: No
  Sender: FDA-Public Use
  Company Number: None

PATIENT

DRUGS (3)
  1. FLUCONAZOLE 150MG TABLETS [Suspect]
     Active Substance: FLUCONAZOLE
  2. MYRBETRIQ [Suspect]
     Active Substance: MIRABEGRON
  3. CLOTRIMAZOLE CREAM [Suspect]
     Active Substance: CLOTRIMAZOLE

REACTIONS (1)
  - Drug dispensed to wrong patient [None]

NARRATIVE: CASE EVENT DATE: 2019
